FAERS Safety Report 23395198 (Version 2)
Quarter: 2024Q2

REPORT INFORMATION
  Report Type: Report from Study
  Country: GB (occurrence: GB)
  Receive Date: 20240112
  Receipt Date: 20240422
  Transmission Date: 20240716
  Serious: Yes (Other)
  Sender: FDA-Public Use
  Company Number: GB-Merck Healthcare KGaA-2024001419

PATIENT
  Age: 34 Year
  Sex: Female

DRUGS (4)
  1. MAVENCLAD [Suspect]
     Active Substance: CLADRIBINE
     Indication: Relapsing-remitting multiple sclerosis
     Dosage: YEAR ONE WEEK ONE: TWO TABLETS ON DAY 1 TO 3 AND ONE TABLET ON DAY 4 TO 5.
     Route: 048
     Dates: start: 20231120, end: 20231124
  2. MAVENCLAD [Suspect]
     Active Substance: CLADRIBINE
     Dosage: YEAR ONE WEEK FIVE: TWO TABLETS ON DAY 1 AND 2 AND ONE TABLET ON DAY 3 TO 5.
     Route: 048
     Dates: start: 20231218, end: 20231222
  3. CHOLECALCIFEROL [Concomitant]
     Active Substance: CHOLECALCIFEROL
     Indication: Supplementation therapy
     Dosage: 4000 UNITS.
  4. COD LIVER OIL [Concomitant]
     Active Substance: COD LIVER OIL
     Indication: Supplementation therapy

REACTIONS (3)
  - Pneumonia [Recovered/Resolved]
  - Immunosuppression [Unknown]
  - Insomnia [Recovering/Resolving]

NARRATIVE: CASE EVENT DATE: 20231221
